FAERS Safety Report 8449979 (Version 2)
Quarter: 2012Q4

REPORT INFORMATION
  Report Type: 
  Country: FR (occurrence: FR)
  Receive Date: 20120309
  Receipt Date: 20121224
  Transmission Date: 20130627
  Serious: Yes (Life-Threatening, Hospitalization, Other)
  Sender: FDA-Public Use
  Company Number: FR-BRISTOL-MYERS SQUIBB COMPANY-16427064

PATIENT
  Age: 60 Year
  Sex: Male

DRUGS (3)
  1. SPRYCEL (CML) TABS 100 MG [Suspect]
     Indication: CHRONIC MYELOID LEUKAEMIA
     Dosage: 100mg/D from Jul09-Aug11;120mg/D from Aug11-Nov11,110mg/D from 29Nov11
     Route: 048
     Dates: start: 200907
  2. ZYLORIC [Concomitant]
     Dates: start: 200903
  3. ASPEGIC [Concomitant]
     Dates: start: 200903

REACTIONS (4)
  - Myocardial infarction [Recovered/Resolved with Sequelae]
  - Chronic obstructive pulmonary disease [Unknown]
  - Arterial restenosis [Unknown]
  - Hyperglycaemia [Unknown]
